FAERS Safety Report 4492083-8 (Version None)
Quarter: 2004Q3

REPORT INFORMATION
  Report Type: 
  Country: None (occurrence: None)
  Receive Date: 20040923
  Receipt Date: 20040419
  Transmission Date: 20050211
  Serious: Yes (Hospitalization)
  Sender: FDA-Public Use
  Company Number: 04P-163-0257929-00

PATIENT
  Age: 2 Year
  Sex: Male

DRUGS (6)
  1. DEPAKOTE [Suspect]
     Indication: MYOCLONIC EPILEPSY
     Dosage: 875 MG, 1 IN 1 D, PER ORAL
     Route: 048
     Dates: start: 20030101, end: 20030601
  2. PHENOBARBITAL TAB [Concomitant]
  3. ZONISAMIDE [Concomitant]
  4. ACETAZOLAMIDE [Concomitant]
  5. TRILEPTAL [Concomitant]
  6. ALENDRONATE SODIUM [Concomitant]

REACTIONS (8)
  - ABASIA [None]
  - COMPLEX PARTIAL SEIZURES [None]
  - DROOLING [None]
  - DRUG INEFFECTIVE [None]
  - FEEDING PROBLEM IN CHILD [None]
  - FLAT AFFECT [None]
  - IRRITABILITY [None]
  - SIMPLE PARTIAL SEIZURES [None]
